FAERS Safety Report 4977230-3 (Version None)
Quarter: 2006Q2

REPORT INFORMATION
  Report Type: 
  Country: None (occurrence: None)
  Receive Date: 20060419
  Receipt Date: 20051213
  Transmission Date: 20061013
  Serious: Yes (Hospitalization)
  Sender: FDA-Public Use
  Company Number: US-MERCK-0512USA02120

PATIENT
  Age: 60 Year
  Sex: Female
  Weight: 77 kg

DRUGS (18)
  1. VIOXX [Suspect]
     Indication: MUSCLE SPASMS
     Route: 048
     Dates: start: 20010115, end: 20010101
  2. VIOXX [Suspect]
     Indication: ARTHRALGIA
     Route: 048
     Dates: start: 20010115, end: 20010101
  3. SYNTHROID [Concomitant]
     Route: 065
  4. NORVASC [Concomitant]
     Route: 065
  5. LIPITOR [Concomitant]
     Route: 065
  6. [THERAPY UNSPECIFIED] [Concomitant]
     Route: 065
  7. ZOLOFT [Concomitant]
     Route: 065
  8. QUININE [Concomitant]
     Route: 065
  9. CLARITIN [Concomitant]
     Route: 065
  10. ESTRATEST [Concomitant]
     Route: 065
  11. ANGI SPRAY (CHLOROBUTANOL (+) HEXETIDINE (+) PROPIONIC ACID) [Concomitant]
     Route: 065
  12. CYANOCOBALAMIN [Concomitant]
     Route: 065
  13. ALLERGENIC EXTRACT [Concomitant]
     Route: 065
  14. VITAMINS (UNSPECIFIED) [Concomitant]
     Route: 065
  15. VITAMIN E [Concomitant]
     Route: 065
  16. OMEGA-3 MARINE TRIGLYCERIDES [Concomitant]
     Route: 065
  17. ASPIRIN [Concomitant]
     Route: 065
  18. PEPTO-BISMOL [Concomitant]
     Route: 065

REACTIONS (15)
  - ASTHENIA [None]
  - CARDIAC FLUTTER [None]
  - CHEST PAIN [None]
  - CORONARY ARTERY DISEASE [None]
  - DIZZINESS [None]
  - DYSPNOEA [None]
  - EXERCISE TEST ABNORMAL [None]
  - FATIGUE [None]
  - FEELING ABNORMAL [None]
  - GASTROOESOPHAGEAL REFLUX DISEASE [None]
  - GLUCOSE TOLERANCE IMPAIRED [None]
  - HYPERLIPIDAEMIA [None]
  - HYPERTENSION [None]
  - NEUROPATHY PERIPHERAL [None]
  - PALPITATIONS [None]
